FAERS Safety Report 10243335 (Version 1)
Quarter: 2014Q2

REPORT INFORMATION
  Report Type: Report from Study
  Country: IN (occurrence: IN)
  Receive Date: 20140618
  Receipt Date: 20140618
  Transmission Date: 20141212
  Serious: Yes (Death)
  Sender: FDA-Public Use
  Company Number: PHHY2014IN074234

PATIENT
  Age: 13 Year
  Sex: Female

DRUGS (1)
  1. ASUNRA [Suspect]
     Indication: IRON OVERLOAD
     Dosage: 800 MG, DAILY
     Route: 048
     Dates: start: 20131114

REACTIONS (1)
  - Lung disorder [Fatal]
